FAERS Safety Report 8418560-2 (Version None)
Quarter: 2012Q2

REPORT INFORMATION
  Report Type: 
  Country: None (occurrence: None)
  Receive Date: 20120607
  Receipt Date: 20120607
  Transmission Date: 20120825
  Serious: Yes (Death, Other)
  Sender: FDA-Public Use
  Company Number: JP-PFIZER INC-2012132446

PATIENT
  Age: 75 Year
  Sex: Female

DRUGS (8)
  1. HEPARIN SODIUM [Concomitant]
     Dosage: UNK
     Route: 051
     Dates: start: 20120118
  2. NICARDIPINE HCL [Concomitant]
     Dosage: 120 MG, DAILY
     Route: 042
     Dates: start: 20120118
  3. ARGATROBAN [Suspect]
     Indication: WHITE CLOT SYNDROME
     Dosage: UNK
     Route: 041
     Dates: start: 20120118, end: 20120119
  4. PHENYTOIN SODIUM CAP [Concomitant]
     Dosage: 500 MG, 1XDAILY
     Route: 042
     Dates: start: 20120118
  5. GLYCEOL [Concomitant]
     Dosage: 200 ML, DAILY
     Route: 041
     Dates: start: 20120118
  6. FAMOTIDINE [Concomitant]
     Indication: PROPHYLAXIS
     Dosage: 20 MG, DAILY
     Route: 042
     Dates: start: 20120118
  7. DIPRIVAN [Concomitant]
     Indication: SEDATION
     Dosage: UNK
     Route: 042
     Dates: start: 20120120
  8. RADICUT [Concomitant]
     Dosage: 30 MG, 2X/DAY
     Route: 041
     Dates: start: 20120118

REACTIONS (2)
  - ILIAC ARTERY OCCLUSION [None]
  - CEREBRAL INFARCTION [None]
